FAERS Safety Report 8475700-7 (Version None)
Quarter: 2012Q2

REPORT INFORMATION
  Report Type: 
  Country: None (occurrence: None)
  Receive Date: 20120628
  Receipt Date: 20120619
  Transmission Date: 20120825
  Serious: Yes (Other)
  Sender: FDA-Public Use
  Company Number: US-GLAXOSMITHKLINE-A0981697A

PATIENT
  Sex: Male

DRUGS (5)
  1. ROBINUL [Concomitant]
  2. LAMOTRIGINE [Suspect]
     Indication: PRODUCT USED FOR UNKNOWN INDICATION
     Route: 065
  3. LAMICTAL [Suspect]
     Dosage: 75MG PER DAY
     Route: 050
  4. MIRALAX [Concomitant]
  5. PREVACID [Concomitant]

REACTIONS (2)
  - DRUG ADMINISTRATION ERROR [None]
  - CONVULSION [None]
